FAERS Safety Report 18082837 (Version 1)
Quarter: 2020Q3

REPORT INFORMATION
  Report Type: Spontaneous
  Country: US (occurrence: US)
  Receive Date: 20200728
  Receipt Date: 20200728
  Transmission Date: 20201103
  Serious: No
  Sender: FDA-Public Use
  Company Number: US-PERRIGO-19US016339

PATIENT
  Age: 39 Year
  Sex: Male
  Weight: 70.3 kg

DRUGS (4)
  1. LISINOPRIL. [Concomitant]
     Active Substance: LISINOPRIL
     Indication: HYPERTENSION
     Dosage: 10 MG
     Route: 065
     Dates: start: 201904
  2. MINOXIDIL. [Suspect]
     Active Substance: MINOXIDIL
     Indication: ALOPECIA
     Dosage: 1 ML, BID
     Route: 061
     Dates: start: 201909, end: 201912
  3. MINOXIDIL. [Suspect]
     Active Substance: MINOXIDIL
     Dosage: 0.25 ML, SINGLE
     Route: 061
     Dates: start: 20191230, end: 20191230
  4. MINOXIDIL. [Suspect]
     Active Substance: MINOXIDIL
     Dosage: 0.5 ML, SINGLE
     Route: 061
     Dates: start: 201912, end: 201912

REACTIONS (5)
  - Application site dryness [Recovered/Resolved]
  - Underdose [Recovered/Resolved]
  - Application site exfoliation [Recovered/Resolved]
  - Application site pain [Recovered/Resolved]
  - Application site pruritus [Not Recovered/Not Resolved]

NARRATIVE: CASE EVENT DATE: 201909
